FAERS Safety Report 25477474 (Version 1)
Quarter: 2025Q2

REPORT INFORMATION
  Report Type: Spontaneous
  Country: DE (occurrence: DE)
  Receive Date: 20250625
  Receipt Date: 20250625
  Transmission Date: 20250716
  Serious: Yes (Other)
  Sender: REGENERON
  Company Number: DE-BAYER-2025A083199

PATIENT
  Sex: Male

DRUGS (1)
  1. EYLEA [Suspect]
     Active Substance: AFLIBERCEPT
     Indication: Neovascular age-related macular degeneration

REACTIONS (3)
  - Traumatic intracranial haemorrhage [Unknown]
  - Accident [Unknown]
  - Cerebrovascular accident [Unknown]
